FAERS Safety Report 25339357 (Version 1)
Quarter: 2025Q2

REPORT INFORMATION
  Report Type: Spontaneous
  Country: US (occurrence: US)
  Receive Date: 20250521
  Receipt Date: 20250521
  Transmission Date: 20250716
  Serious: Yes (Hospitalization)
  Sender: PROCTER AND GAMBLE
  Company Number: US-MLMSERVICE-20250508-PI501507-00029-1

PATIENT
  Age: 38 Year
  Sex: Female

DRUGS (4)
  1. ACETAMINOPHEN [Suspect]
     Active Substance: ACETAMINOPHEN
     Indication: Pain management
  2. IBUPROFEN [Suspect]
     Active Substance: IBUPROFEN
     Indication: Pain management
  3. ASPIRIN [Suspect]
     Active Substance: ASPIRIN
     Indication: Prophylaxis
  4. ENOXAPARIN [Concomitant]
     Active Substance: ENOXAPARIN
     Indication: Prophylaxis

REACTIONS (13)
  - Peptic ulcer perforation [Recovering/Resolving]
  - Duodenal ulcer perforation [Recovering/Resolving]
  - Nausea [Recovering/Resolving]
  - Vomiting [Recovering/Resolving]
  - Decreased appetite [Recovering/Resolving]
  - Abdominal pain [Recovering/Resolving]
  - Chest pain [Recovering/Resolving]
  - Abdominal rebound tenderness [Recovering/Resolving]
  - Hypoglycaemia [Recovering/Resolving]
  - Tachycardia [Unknown]
  - Body temperature increased [Recovering/Resolving]
  - Heart rate increased [Recovering/Resolving]
  - Blood glucose decreased [Recovering/Resolving]
